FAERS Safety Report 20485756 (Version 4)
Quarter: 2022Q1

REPORT INFORMATION
  Report Type: Spontaneous
  Country: GB (occurrence: GB)
  Receive Date: 20220217
  Receipt Date: 20220330
  Transmission Date: 20220423
  Serious: Yes (Other)
  Sender: FDA-Public Use
  Company Number: GB-MYLANLABS-2022M1012431

PATIENT
  Age: 51 Year
  Sex: Female

DRUGS (1)
  1. CLOZARIL [Suspect]
     Active Substance: CLOZAPINE
     Indication: Schizophrenia
     Dosage: UNK
     Route: 048
     Dates: start: 20211007

REACTIONS (6)
  - Haemoglobin decreased [Not Recovered/Not Resolved]
  - Mean cell haemoglobin concentration increased [Unknown]
  - Red blood cell count decreased [Unknown]
  - Mean cell haemoglobin decreased [Unknown]
  - Mean cell volume decreased [Unknown]
  - Haematocrit decreased [Unknown]

NARRATIVE: CASE EVENT DATE: 20220207
